FAERS Safety Report 4928135-5 (Version None)
Quarter: 2006Q1

REPORT INFORMATION
  Report Type: 
  Country: None (occurrence: None)
  Receive Date: 20060223
  Receipt Date: 20060201
  Transmission Date: 20060701
  Serious: Yes (Death, Life-Threatening)
  Sender: FDA-Public Use
  Company Number: FR200602000313

PATIENT
  Age: 55 Year
  Sex: Female

DRUGS (1)
  1. GEMZAR [Suspect]
     Indication: LUNG NEOPLASM MALIGNANT
     Dosage: INTRAVENOUS
     Route: 042

REACTIONS (2)
  - BONE MARROW FAILURE [None]
  - THROMBOCYTOPENIA [None]
